FAERS Safety Report 10620556 (Version 1)
Quarter: 2014Q4

REPORT INFORMATION
  Report Type: Spontaneous
  Country: BR (occurrence: BR)
  Receive Date: 20141202
  Receipt Date: 20141202
  Transmission Date: 20150529
  Serious: Yes (Other)
  Sender: FDA-Public Use
  Company Number: BR-GSKJP-BR2014GSK028318AA

PATIENT
  Sex: Female

DRUGS (2)
  1. AEROLIN [Suspect]
     Active Substance: ALBUTEROL
     Indication: PRODUCT USED FOR UNKNOWN INDICATION
     Dosage: UNK
     Dates: start: 1999
  2. AEROLIN [Suspect]
     Active Substance: ALBUTEROL
     Dosage: UNK
     Dates: start: 20141125

REACTIONS (2)
  - Asthmatic crisis [Not Recovered/Not Resolved]
  - Drug ineffective [Not Recovered/Not Resolved]

NARRATIVE: CASE EVENT DATE: 1999
